FAERS Safety Report 16382010 (Version 1)
Quarter: 2019Q2

REPORT INFORMATION
  Report Type: Report from Study
  Country: US (occurrence: US)
  Receive Date: 20190603
  Receipt Date: 20190603
  Transmission Date: 20190711
  Serious: Yes (Other)
  Sender: FDA-Public Use
  Company Number: US-SA-2019SA141416

PATIENT
  Age: 78 Year
  Sex: Female

DRUGS (2)
  1. XARELTO [Concomitant]
     Active Substance: RIVAROXABAN
  2. DRONEDARONE [Suspect]
     Active Substance: DRONEDARONE
     Indication: MYOCARDIAL ISCHAEMIA
     Dosage: 400 MG, BID, AFTER BREAKFAST AND AFTER DINNER
     Route: 065

REACTIONS (24)
  - Gait disturbance [Unknown]
  - Ear haemorrhage [Unknown]
  - Hearing disability [Unknown]
  - Back pain [Unknown]
  - Cough [Unknown]
  - Visual impairment [Unknown]
  - Dysphonia [Unknown]
  - Weight decreased [Unknown]
  - Limb injury [Unknown]
  - Heart rate abnormal [Unknown]
  - Cataract [Unknown]
  - Abdominal discomfort [Unknown]
  - Coronary artery disease [Unknown]
  - Blister [Unknown]
  - Knee deformity [Unknown]
  - Malignant palate neoplasm [Unknown]
  - Malaise [Unknown]
  - Hypertension [Unknown]
  - Memory impairment [Unknown]
  - Lung disorder [Unknown]
  - Shoulder deformity [Unknown]
  - Endoscopic retrograde cholangiopancreatography [Unknown]
  - Breast cancer [Unknown]
  - Complication associated with device [Unknown]

NARRATIVE: CASE EVENT DATE: 2007
